FAERS Safety Report 6293276-X (Version None)
Quarter: 2009Q3

REPORT INFORMATION
  Report Type: 
  Country: None (occurrence: None)
  Receive Date: 20090731
  Receipt Date: 20090720
  Transmission Date: 20100115
  Serious: Yes (Disabling, Other)
  Sender: FDA-Public Use
  Company Number: AU-WYE-G04086509

PATIENT
  Sex: Male

DRUGS (6)
  1. EFFEXOR XR [Suspect]
     Dosage: 225MG
  2. EFFEXOR XR [Suspect]
     Dosage: 187.5
  3. EFFEXOR XR [Suspect]
     Dosage: 150
  4. EFFEXOR XR [Suspect]
     Dosage: 112.5
  5. EFFEXOR XR [Suspect]
     Dosage: 75
  6. EFFEXOR XR [Suspect]
     Dosage: 37.5

REACTIONS (13)
  - ANGER [None]
  - CONDITION AGGRAVATED [None]
  - DEPRESSED MOOD [None]
  - DRUG WITHDRAWAL SYNDROME [None]
  - EMOTIONAL DISORDER [None]
  - EMOTIONAL DISTRESS [None]
  - FEELING ABNORMAL [None]
  - FEELING OF DESPAIR [None]
  - PAIN [None]
  - PSYCHOTIC DISORDER [None]
  - SELF-INJURIOUS IDEATION [None]
  - SUICIDAL IDEATION [None]
  - UNEVALUABLE EVENT [None]
